FAERS Safety Report 7934006-2 (Version None)
Quarter: 2011Q4

REPORT INFORMATION
  Report Type: 
  Country: None (occurrence: None)
  Receive Date: 20111122
  Receipt Date: 20111110
  Transmission Date: 20120403
  Serious: Yes (Other)
  Sender: FDA-Public Use
  Company Number: CA-ELI_LILLY_AND_COMPANY-CA201111004178

PATIENT
  Age: 22 Year
  Sex: Female

DRUGS (3)
  1. CYMBALTA [Suspect]
     Dosage: 30 MG, UNK
     Dates: start: 20110928
  2. CYMBALTA [Suspect]
     Dosage: 60 MG, UNK
     Dates: start: 20111005
  3. CYMBALTA [Suspect]
     Dosage: 30 MG, UNK
     Dates: start: 20111024, end: 20111109

REACTIONS (4)
  - TONGUE EXFOLIATION [None]
  - CHEST DISCOMFORT [None]
  - CONSTIPATION [None]
  - DYSPNOEA [None]
